FAERS Safety Report 7330236-1 (Version None)
Quarter: 2011Q1

REPORT INFORMATION
  Report Type: 
  Country: None (occurrence: None)
  Receive Date: 20110303
  Receipt Date: 20110223
  Transmission Date: 20110831
  Serious: Yes (Other)
  Sender: FDA-Public Use
  Company Number: US-BAYER-2011-018438

PATIENT
  Sex: Female

DRUGS (2)
  1. CORTICOSTEROID NOS [Concomitant]
     Indication: PNEUMONIA
  2. AVELOX [Suspect]
     Indication: PNEUMONIA
     Dosage: UNK
     Dates: start: 20110127, end: 20110127

REACTIONS (4)
  - THROAT TIGHTNESS [None]
  - HYPERSENSITIVITY [None]
  - LIP SWELLING [None]
  - EYE SWELLING [None]
